FAERS Safety Report 5362116-5 (Version None)
Quarter: 2007Q2

REPORT INFORMATION
  Report Type: 
  Country: None (occurrence: None)
  Receive Date: 20070612
  Receipt Date: 20070529
  Transmission Date: 20071010
  Serious: Yes (Other)
  Sender: FDA-Public Use
  Company Number: A-US2007-14937

PATIENT
  Age: 22 Year
  Sex: Male

DRUGS (1)
  1. VENTAVIS [Suspect]
     Indication: RAYNAUD'S PHENOMENON
     Dosage: 0.5-2.0 NG/KG, INTRAVENOUS
     Route: 042

REACTIONS (7)
  - DEAFNESS NEUROSENSORY [None]
  - DEAFNESS TRANSITORY [None]
  - DIZZINESS [None]
  - ENDOLYMPHATIC HYDROPS [None]
  - INNER EAR DISORDER [None]
  - OTOTOXICITY [None]
  - TINNITUS [None]
